FAERS Safety Report 19039264 (Version 3)
Quarter: 2021Q4

REPORT INFORMATION
  Report Type: Report from Study
  Country: DE (occurrence: DE)
  Receive Date: 20210322
  Receipt Date: 20211202
  Transmission Date: 20220303
  Serious: Yes (Life-Threatening, Hospitalization, Other)
  Sender: FDA-Public Use
  Company Number: DE-SHIRE-DE201924176

PATIENT
  Age: 9 Year
  Sex: Female

DRUGS (28)
  1. TEDUGLUTIDE [Suspect]
     Active Substance: TEDUGLUTIDE
     Indication: Short-bowel syndrome
     Dosage: 0.8 MILLIGRAM, QD
     Route: 065
     Dates: start: 20171001, end: 20200825
  2. TEDUGLUTIDE [Suspect]
     Active Substance: TEDUGLUTIDE
     Indication: Short-bowel syndrome
     Dosage: 0.8 MILLIGRAM, QD
     Route: 065
     Dates: start: 20171001, end: 20200825
  3. TEDUGLUTIDE [Suspect]
     Active Substance: TEDUGLUTIDE
     Indication: Short-bowel syndrome
     Dosage: 0.8 MILLIGRAM, QD
     Route: 065
     Dates: start: 20171001, end: 20200825
  4. TEDUGLUTIDE [Suspect]
     Active Substance: TEDUGLUTIDE
     Indication: Short-bowel syndrome
     Dosage: 0.8 MILLIGRAM, QD
     Route: 065
     Dates: start: 20171001, end: 20200825
  5. TEDUGLUTIDE [Suspect]
     Active Substance: TEDUGLUTIDE
     Dosage: 0.9 MILLIGRAM
     Route: 065
     Dates: start: 20200826, end: 20210317
  6. TEDUGLUTIDE [Suspect]
     Active Substance: TEDUGLUTIDE
     Dosage: 0.9 MILLIGRAM
     Route: 065
     Dates: start: 20200826, end: 20210317
  7. TEDUGLUTIDE [Suspect]
     Active Substance: TEDUGLUTIDE
     Dosage: 0.9 MILLIGRAM
     Route: 065
     Dates: start: 20200826, end: 20210317
  8. TEDUGLUTIDE [Suspect]
     Active Substance: TEDUGLUTIDE
     Dosage: 0.9 MILLIGRAM
     Route: 065
     Dates: start: 20200826, end: 20210317
  9. FERRLECIT 2 [Concomitant]
     Indication: Iron deficiency anaemia
     Route: 065
  10. FUROSEMIDE [Concomitant]
     Active Substance: FUROSEMIDE
     Indication: Disease complication
     Dosage: UNK
     Route: 065
  11. HEPARIN [Concomitant]
     Active Substance: HEPARIN SODIUM
     Indication: Anticoagulant therapy
     Dosage: UNK
     Route: 065
  12. ERYTHROPOETIN [EPOETIN ALFA] [Concomitant]
     Indication: Anaemia
     Dosage: UNK
     Route: 065
  13. NEFROCARNIT [Concomitant]
     Indication: Product used for unknown indication
     Dosage: UNK
     Route: 065
  14. CALCITRIOL [Concomitant]
     Active Substance: CALCITRIOL
     Indication: Product used for unknown indication
     Dosage: UNK
     Route: 065
  15. ERYTHROPOIETIN [Concomitant]
     Active Substance: ERYTHROPOIETIN
     Indication: Product used for unknown indication
     Dosage: UNK
     Route: 065
  16. VITADRAL [Concomitant]
     Indication: Product used for unknown indication
     Dosage: UNK
     Route: 065
  17. AMPHO-MORONAL [Concomitant]
     Active Substance: AMPHOTERICIN B
     Indication: Product used for unknown indication
     Dosage: UNK
     Route: 065
  18. ZINC OROTATE [Concomitant]
     Active Substance: ZINC OROTATE
     Indication: Product used for unknown indication
     Dosage: UNK
     Route: 065
  19. SODIUM CHLORIDE [Concomitant]
     Active Substance: SODIUM CHLORIDE
     Indication: Product used for unknown indication
     Dosage: UNK
     Route: 065
  20. FLUCLOXACILLIN [Concomitant]
     Active Substance: FLUCLOXACILLIN
     Indication: Sepsis
     Dosage: UNK
     Route: 065
  21. OCTENISAN [ALLANTOIN;OCTENIDINE HYDROCHLORIDE] [Concomitant]
     Indication: Wound treatment
     Dosage: UNK
     Route: 065
  22. POLIHEXANIDE [Concomitant]
     Active Substance: POLIHEXANIDE
     Indication: Wound treatment
     Dosage: UNK
     Route: 065
  23. CREON [Concomitant]
     Active Substance: PANCRELIPASE AMYLASE\PANCRELIPASE LIPASE\PANCRELIPASE PROTEASE
     Indication: Pancreatic failure
     Dosage: 5000 IE, TID
     Route: 048
     Dates: start: 20210919
  24. CREON [Concomitant]
     Active Substance: PANCRELIPASE AMYLASE\PANCRELIPASE LIPASE\PANCRELIPASE PROTEASE
     Indication: Dyspepsia
  25. OMNITROPE [Concomitant]
     Active Substance: SOMATROPIN
     Indication: Failure to thrive
     Dosage: UNK
     Route: 065
  26. PANTOPRAZOLE [Concomitant]
     Active Substance: PANTOPRAZOLE
     Indication: Gastric ulcer
     Dosage: 10 MILLIGRAM
     Route: 065
     Dates: start: 20210919
  27. Kalinor [Concomitant]
     Indication: Hypokalaemia
     Dosage: 1 DOSAGE FORM, QD
     Route: 048
     Dates: start: 20210919
  28. ERYTHROPOIETIN [Concomitant]
     Active Substance: ERYTHROPOIETIN
     Indication: Anaemia
     Dosage: 500 IE, 1/WEEK
     Route: 058
     Dates: start: 20210828

REACTIONS (3)
  - Device related infection [Recovered/Resolved]
  - Sepsis [Recovered/Resolved]
  - Neutropenia [Recovered/Resolved]

NARRATIVE: CASE EVENT DATE: 20190601
